FAERS Safety Report 11213362 (Version 1)
Quarter: 2015Q2

REPORT INFORMATION
  Report Type: Spontaneous
  Country: FI (occurrence: FI)
  Receive Date: 20150623
  Receipt Date: 20150623
  Transmission Date: 20150821
  Serious: Yes (Hospitalization, Other)
  Sender: FDA-Public Use
  Company Number: PHHY2015FI073407

PATIENT
  Age: 37 Day

DRUGS (1)
  1. LEVETIRACETAM. [Suspect]
     Active Substance: LEVETIRACETAM
     Indication: PRODUCT USED FOR UNKNOWN INDICATION
     Dosage: 1 ML OF 100 MG/ ML
     Route: 048

REACTIONS (6)
  - Overdose [Recovered/Resolved]
  - Toxicity to various agents [Recovered/Resolved]
  - Heart rate decreased [Recovered/Resolved]
  - Medication error [Recovered/Resolved]
  - Apnoea [Recovered/Resolved]
  - Oxygen saturation decreased [Recovered/Resolved]
